FAERS Safety Report 4889586-0 (Version None)
Quarter: 2006Q1

REPORT INFORMATION
  Report Type: 
  Country: None (occurrence: None)
  Receive Date: 20060120
  Receipt Date: 20060112
  Transmission Date: 20060701
  Serious: Yes (Hospitalization)
  Sender: FDA-Public Use
  Company Number: TPA2005A01214

PATIENT
  Age: 72 Year
  Sex: Male

DRUGS (5)
  1. ROZEREM [Suspect]
     Dosage: SEE IMAGE
     Route: 048
     Dates: start: 20051001
  2. TRACLEER [Concomitant]
  3. VIAGRA [Concomitant]
  4. INDERAL [Concomitant]
  5. COUMADIN [Concomitant]

REACTIONS (2)
  - DRUG INEFFECTIVE [None]
  - HALLUCINATION [None]
